FAERS Safety Report 17926596 (Version 1)
Quarter: 2020Q2

REPORT INFORMATION
  Report Type: Spontaneous
  Country: CA (occurrence: CA)
  Receive Date: 20200623
  Receipt Date: 20200623
  Transmission Date: 20200714
  Serious: Yes (Life-Threatening, Hospitalization, Other)
  Sender: FDA-Public Use
  Company Number: CA-SUN PHARMACEUTICAL INDUSTRIES LTD-2020R1-250102

PATIENT
  Age: 20 Month
  Sex: Male
  Weight: 15 kg

DRUGS (1)
  1. MORPHINE [Suspect]
     Active Substance: MORPHINE
     Indication: PRODUCT USED FOR UNKNOWN INDICATION
     Dosage: 2 MG DOSE AND AFTER 2 HR 3 MG DOSE GIVEN
     Route: 048

REACTIONS (3)
  - Somnolence [Unknown]
  - Medication error [Unknown]
  - Loss of consciousness [Unknown]
